FAERS Safety Report 5404701-8 (Version None)
Quarter: 2007Q3

REPORT INFORMATION
  Report Type: 
  Country: None (occurrence: None)
  Receive Date: 20070731
  Receipt Date: 20070725
  Transmission Date: 20080115
  Serious: Yes (Life-Threatening)
  Sender: FDA-Public Use
  Company Number: 2007-02528

PATIENT
  Age: 71 Year
  Sex: Female
  Weight: 36 kg

DRUGS (1)
  1. VELCADE [Suspect]
     Indication: MULTIPLE MYELOMA
     Dosage: 1.30 MG/M2,  INTRAVENOUS
     Route: 042

REACTIONS (1)
  - PLEURAL EFFUSION [None]
